FAERS Safety Report 5776235-2 (Version None)
Quarter: 2008Q2

REPORT INFORMATION
  Report Type: 
  Country: None (occurrence: None)
  Receive Date: 20080616
  Receipt Date: 20080605
  Transmission Date: 20081010
  Serious: Yes (Other)
  Sender: FDA-Public Use
  Company Number: 19491

PATIENT
  Sex: Female

DRUGS (3)
  1. CYTARABINE [Suspect]
     Indication: ACUTE MYELOID LEUKAEMIA
     Dosage: 3 G/M2 DAILY
  2. LEUKINE [Concomitant]
  3. IDARUBICIN HCL [Concomitant]

REACTIONS (1)
  - MYELODYSPLASTIC SYNDROME [None]
